FAERS Safety Report 17873186 (Version 1)
Quarter: 2020Q2

REPORT INFORMATION
  Report Type: Spontaneous
  Country: US (occurrence: US)
  Receive Date: 20200608
  Receipt Date: 20200608
  Transmission Date: 20200714
  Serious: Yes (Other)
  Sender: FDA-Public Use
  Company Number: US-OSMOTICA_PHARMACEUTICAL_US_LLC-POI0573202000251

PATIENT
  Age: 90 Year
  Sex: Male

DRUGS (3)
  1. OSMOLEX ER [Suspect]
     Active Substance: AMANTADINE
     Dates: start: 202003
  2. OSMOLEX ER [Suspect]
     Active Substance: AMANTADINE
     Indication: PARKINSON^S DISEASE
     Dates: start: 20200128, end: 2020
  3. OSMOLEX ER [Suspect]
     Active Substance: AMANTADINE
     Dates: start: 2020, end: 202003

REACTIONS (2)
  - Respiratory distress [Unknown]
  - Hallucination [Unknown]

NARRATIVE: CASE EVENT DATE: 2020
